FAERS Safety Report 4944741-6 (Version None)
Quarter: 2006Q1

REPORT INFORMATION
  Report Type: 
  Country: None (occurrence: None)
  Receive Date: 20060113
  Receipt Date: 20050524
  Transmission Date: 20060701
  Serious: Yes (Other)
  Sender: FDA-Public Use
  Company Number: HQWYE412023JUL04

PATIENT
  Age: 60 Year
  Sex: Female
  Weight: 74.91 kg

DRUGS (8)
  1. PREMPRO [Suspect]
     Indication: OSTEOPOROSIS
     Dosage: ORAL
     Route: 048
     Dates: start: 19950901
  2. ESTROGEN NOS (ESTROGEN NOS, ) [Suspect]
  3. MEDROXYPROGESTERONE [Suspect]
  4. OGEN [Suspect]
     Indication: OSTEOPOROSIS
     Dosage: ORAL
     Route: 048
     Dates: start: 19980301, end: 20000601
  5. PREMARIN [Suspect]
  6. PROVERA [Suspect]
     Dosage: ORAL
     Route: 048
     Dates: start: 19980301, end: 20000601
  7. SYNTHROID [Concomitant]
  8. ASPIRIN [Concomitant]

REACTIONS (1)
  - BREAST CANCER [None]
